FAERS Safety Report 5362670-3 (Version None)
Quarter: 2007Q2

REPORT INFORMATION
  Report Type: 
  Country: None (occurrence: None)
  Receive Date: 20070614
  Receipt Date: 20070611
  Transmission Date: 20071010
  Serious: Yes (Death)
  Sender: FDA-Public Use
  Company Number: TCI2007A02483

PATIENT
  Age: 79 Year
  Sex: Male

DRUGS (7)
  1. LEUPROLIDE ACETATE [Suspect]
     Indication: PROSTATE CANCER
     Dosage: 3.75 MG (3.75 MG, 1 IN 28 D), SUBCUTANEOUS
     Route: 058
     Dates: start: 20070331, end: 20070518
  2. LOXONIN (LOXOPROFEN SODIUM) TABLETS [Concomitant]
  3. MUCOSTA (REBAMIPIDE) (TABLETS) [Concomitant]
  4. AMIGRAND (MIXED AMINO ACID/CARBOHYDRATE/ELECTROLYTE/VITAMIN COMBINED D [Concomitant]
  5. VITAMEDIN (VITAMEDIN INTRAVENOUS) (INJECTION) [Concomitant]
  6. ASCORBIC ACID (INJECTION) [Concomitant]
  7. SOLUTIONS FOR PARENTERAL NUTRITION (INJECTION) [Concomitant]

REACTIONS (18)
  - BEDRIDDEN [None]
  - BLOOD CHLORIDE DECREASED [None]
  - BLOOD CREATINE PHOSPHOKINASE INCREASED [None]
  - BLOOD CREATININE DECREASED [None]
  - BLOOD KETONE BODY INCREASED [None]
  - BLOOD SODIUM DECREASED [None]
  - BLOOD UREA INCREASED [None]
  - CARDIAC ARREST [None]
  - CARDIAC FAILURE ACUTE [None]
  - DECREASED APPETITE [None]
  - DYSPNOEA [None]
  - HYPERKALAEMIA [None]
  - INCONTINENCE [None]
  - MALAISE [None]
  - RESPIRATORY ARREST [None]
  - URINE KETONE BODY PRESENT [None]
  - URINE OUTPUT DECREASED [None]
  - VOMITING [None]
